FAERS Safety Report 7509337-0 (Version None)
Quarter: 2011Q2

REPORT INFORMATION
  Report Type: 
  Country: None (occurrence: None)
  Receive Date: 20110527
  Receipt Date: 20110518
  Transmission Date: 20111010
  Serious: Yes (Death, Hospitalization)
  Sender: FDA-Public Use
  Company Number: PHHO2011JP08648

PATIENT
  Age: 59 Year
  Sex: Female
  Weight: 44 kg

DRUGS (16)
  1. SULFAMETHOXAZOLE AND TRIMETHOPRIM [Suspect]
     Dosage: UNK
     Dates: start: 20100925, end: 20100927
  2. TOCOPHERYL NICOTINATE [Suspect]
  3. VOLTAREN [Suspect]
     Dosage: 50 MG, QD
     Dates: start: 20100706, end: 20100816
  4. LOXOPROFEN [Suspect]
     Dosage: 120 MG, BID
     Dates: start: 20041228, end: 20100906
  5. PREDNISOLONE [Suspect]
     Dosage: 12 MG, QD
     Dates: start: 20100906, end: 20100923
  6. PREDNISOLONE [Suspect]
     Dosage: 12 MG, QD
     Dates: start: 20100925, end: 20100926
  7. DEXAMETHASONE SODIUM PHOSPHATE [Suspect]
  8. GLYCYRON [Suspect]
  9. VOLTAREN [Suspect]
     Dosage: 50 MG, BID
     Dates: start: 20100818, end: 20100904
  10. PREDNISOLONE [Suspect]
     Dosage: 42 MG, QD
     Dates: start: 20100924
  11. CODEINE SULFATE [Suspect]
  12. CELECOXIB [Suspect]
     Dosage: 100 MG, BID
     Dates: start: 20100526, end: 20100905
  13. PREDNISOLONE [Suspect]
     Dosage: 5 MG, QD
     Dates: start: 20020111, end: 20100905
  14. MAGNESIUM OXIDE [Suspect]
  15. OLMESARTAN MEDOXOMIL [Concomitant]
  16. ISONIAZID [Concomitant]
     Dosage: 100 MG, BID
     Dates: start: 20100904

REACTIONS (6)
  - RHEUMATOID ARTHRITIS [None]
  - PLEURISY [None]
  - INTERSTITIAL LUNG DISEASE [None]
  - DISSEMINATED INTRAVASCULAR COAGULATION [None]
  - LIVER DISORDER [None]
  - THROMBOTIC THROMBOCYTOPENIC PURPURA [None]
